FAERS Safety Report 23933641 (Version 1)
Quarter: 2024Q2

REPORT INFORMATION
  Report Type: Spontaneous
  Country: US (occurrence: None)
  Receive Date: 20240602
  Receipt Date: 20240602
  Transmission Date: 20240716
  Serious: Yes (Life-Threatening, Disabling, Other)
  Sender: FDA-Public Use
  Company Number: None

PATIENT
  Age: 37 Year
  Sex: Female
  Weight: 105.75 kg

DRUGS (3)
  1. MONTELUKAST SODIUM [Suspect]
     Active Substance: MONTELUKAST SODIUM
     Indication: Asthma
     Dosage: OTHER QUANTITY : 1 TABLET(S)?FREQUENCY : AT BEDTIME;
     Route: 048
     Dates: start: 20230101, end: 20240402
  2. UNSPECIFIED INGREDIENT [Concomitant]
     Active Substance: UNSPECIFIED INGREDIENT
  3. VITAMINS [Concomitant]
     Active Substance: VITAMINS

REACTIONS (16)
  - Agitation [None]
  - Aggression [None]
  - Depression [None]
  - Anxiety [None]
  - Irritability [None]
  - Suicidal ideation [None]
  - Depressed mood [None]
  - Mood altered [None]
  - Dry throat [None]
  - Abdominal pain upper [None]
  - Rhinorrhoea [None]
  - Nasal congestion [None]
  - Pruritus [None]
  - Hypoaesthesia [None]
  - Paraesthesia [None]
  - Ear infection [None]

NARRATIVE: CASE EVENT DATE: 20240201
